FAERS Safety Report 23877024 (Version 3)
Quarter: 2024Q3

REPORT INFORMATION
  Report Type: Spontaneous
  Country: US (occurrence: US)
  Receive Date: 20240521
  Receipt Date: 20240827
  Transmission Date: 20241017
  Serious: No
  Sender: BOEHRINGER INGELHEIM
  Company Number: US-BoehringerIngelheim-2024-BI-028800

PATIENT
  Age: 77 Year
  Sex: Female

DRUGS (3)
  1. COMBIVENT RESPIMAT [Suspect]
     Active Substance: ALBUTEROL SULFATE\IPRATROPIUM BROMIDE
     Indication: Dyspnoea
     Dosage: 1-2 PUFFS AS NEEDED
  2. COMBIVENT RESPIMAT [Suspect]
     Active Substance: ALBUTEROL SULFATE\IPRATROPIUM BROMIDE
     Indication: Wheezing
  3. COMBIVENT RESPIMAT [Suspect]
     Active Substance: ALBUTEROL SULFATE\IPRATROPIUM BROMIDE
     Indication: Bronchitis chronic

REACTIONS (4)
  - Feeling abnormal [Unknown]
  - Off label use [Unknown]
  - Product prescribing error [Unknown]
  - Device defective [Unknown]

NARRATIVE: CASE EVENT DATE: 20240519
